FAERS Safety Report 7883969-2 (Version None)
Quarter: 2011Q4

REPORT INFORMATION
  Report Type: 
  Country: None (occurrence: None)
  Receive Date: 20111102
  Receipt Date: 20111018
  Transmission Date: 20120403
  Serious: Yes (Disabling)
  Sender: FDA-Public Use
  Company Number: PHHY2011JP82595

PATIENT
  Sex: Male
  Weight: 68 kg

DRUGS (22)
  1. LIPITOR [Concomitant]
     Dosage: UNK UKN, UNK
  2. PREDNISOLONE [Concomitant]
     Dosage: 20 MG, UNK
  3. PREDNISOLONE [Suspect]
     Dosage: 40 MG, UNK
     Route: 048
     Dates: start: 20110810
  4. CARNACULIN [Concomitant]
     Dosage: UNK UKN, UNK
  5. OLMESARTAN MEDOXOMIL [Concomitant]
     Dosage: UNK UKN, UNK
     Route: 048
  6. PREDNISOLONE [Concomitant]
     Indication: GLOMERULONEPHRITIS MEMBRANOUS
     Dosage: 25 MG, UNK
     Dates: start: 20110831
  7. NEORAL [Suspect]
     Indication: GLOMERULONEPHRITIS MEMBRANOUS
     Dosage: 125 MG, UNK
     Route: 048
     Dates: start: 20110803, end: 20110815
  8. PREDNISOLONE [Suspect]
     Dosage: 7.5 MG, UNK
     Route: 048
     Dates: start: 20111011
  9. ASPIRIN [Concomitant]
     Dosage: UNK UKN, UNK
     Route: 048
  10. ALENDRONATE SODIUM [Concomitant]
     Dosage: 5 MG, UNK
     Route: 048
  11. SULFAMETHOXAZOLE [Concomitant]
     Dosage: UNK UKN, UNK
     Route: 048
  12. PREDNISOLONE [Concomitant]
     Dosage: 15 MG, UNK
     Dates: start: 20110928
  13. PREDNISOLONE [Suspect]
     Dosage: 50 MG, UNK
     Route: 048
     Dates: start: 20110719, end: 20110726
  14. PREDNISOLONE [Suspect]
     Dosage: 50 MG, UNK
     Route: 048
     Dates: start: 20110730
  15. PREDNISOLONE [Suspect]
     Dosage: 45 MG, UNK
     Route: 048
     Dates: start: 20110803
  16. PREDNISOLONE [Suspect]
     Dosage: 10 MG, UNK
     Route: 048
     Dates: start: 20110929
  17. FAMOTIDINE [Concomitant]
     Dosage: UNK UKN, UNK
     Route: 048
  18. NEORAL [Suspect]
     Dosage: 50 MG, UNK
     Route: 048
     Dates: start: 20110824, end: 20110830
  19. PREDNISOLONE [Suspect]
     Indication: GLOMERULONEPHRITIS MEMBRANOUS
     Dosage: 60 MG, UNK
     Route: 048
     Dates: start: 20110705
  20. PREDNISOLONE [Suspect]
     Dosage: 35 MG, UNK
     Route: 048
     Dates: start: 20110817, end: 20110830
  21. MECOBALAMIN [Concomitant]
     Dosage: UNK UKN, UNK
  22. SOLU-CORTEF [Concomitant]
     Dosage: 1000 MG, DAILY
     Dates: start: 20110716

REACTIONS (8)
  - MALAISE [None]
  - DIZZINESS [None]
  - CEREBRAL SMALL VESSEL ISCHAEMIC DISEASE [None]
  - CONVULSION [None]
  - ALTERED STATE OF CONSCIOUSNESS [None]
  - LOSS OF CONSCIOUSNESS [None]
  - VISION BLURRED [None]
  - VISUAL ACUITY REDUCED [None]
